FAERS Safety Report 7483482-0 (Version None)
Quarter: 2011Q2

REPORT INFORMATION
  Report Type: 
  Country: None (occurrence: None)
  Receive Date: 20110517
  Receipt Date: 20110503
  Transmission Date: 20111010
  Serious: Yes (Other)
  Sender: FDA-Public Use
  Company Number: NL-MYLANLABS-2011S1009057

PATIENT
  Age: 42 Year
  Sex: Female

DRUGS (1)
  1. MINOCYCLINE HCL [Suspect]
     Indication: DERMATITIS
     Dosage: 2 X DAAGS 50 MG ( 50 MG TABLET!!)
     Route: 048
     Dates: start: 20101221, end: 20110201

REACTIONS (2)
  - GAMMA-GLUTAMYLTRANSFERASE ABNORMAL [None]
  - DRUG HYPERSENSITIVITY [None]
